FAERS Safety Report 11901289 (Version 1)
Quarter: 2016Q1

REPORT INFORMATION
  Report Type: Other
  Country: FR (occurrence: FR)
  Receive Date: 20160108
  Receipt Date: 20160108
  Transmission Date: 20160526
  Serious: Yes (Hospitalization)
  Sender: FDA-Public Use
  Company Number: FR-WARNER CHILCOTT, LLC-1046290

PATIENT
  Age: 82 Year
  Sex: Female

DRUGS (8)
  1. CITALOPRAM [Concomitant]
     Active Substance: CITALOPRAM HYDROBROMIDE
     Dates: start: 2014
  2. FLECAINE [Suspect]
     Active Substance: FLECAINIDE
     Route: 048
     Dates: start: 200808, end: 20151210
  3. AMLODIPINE [Concomitant]
     Active Substance: AMLODIPINE BESYLATE
     Dates: start: 201403
  4. KARDEGIC [Suspect]
     Active Substance: ASPIRIN LYSINE
     Route: 048
     Dates: start: 201002
  5. ALPRAZOLAM. [Suspect]
     Active Substance: ALPRAZOLAM
     Route: 048
     Dates: start: 2013
  6. LIPANTHYL [Suspect]
     Active Substance: FENOFIBRATE
     Route: 048
     Dates: start: 2007, end: 20151210
  7. CALCIUM [Concomitant]
     Active Substance: CALCIUM
     Dates: start: 2008
  8. ACTONEL [Suspect]
     Active Substance: RISEDRONATE SODIUM
     Indication: OSTEOPOROSIS
     Route: 048
     Dates: start: 2008

REACTIONS (6)
  - Abdominal pain [None]
  - Vomiting [None]
  - Urinary tract infection [None]
  - Bronchiolitis [Not Recovered/Not Resolved]
  - Interstitial lung disease [Not Recovered/Not Resolved]
  - Haemoglobin decreased [None]

NARRATIVE: CASE EVENT DATE: 2013
